FAERS Safety Report 7456697-5 (Version None)
Quarter: 2011Q2

REPORT INFORMATION
  Report Type: 
  Country: None (occurrence: None)
  Receive Date: 20110503
  Receipt Date: 20090220
  Transmission Date: 20111010
  Serious: Yes (Death)
  Sender: FDA-Public Use
  Company Number: US-GILEAD-2009-0020441

PATIENT
  Sex: Female

DRUGS (16)
  1. QVAR INHALER [Concomitant]
  2. SPIRONOLACTONE [Concomitant]
  3. AMBIEN [Concomitant]
  4. BIOTIN [Concomitant]
  5. WARFARIN [Concomitant]
  6. ALLEGRA [Concomitant]
  7. TYLENOL W/ CODEINE NO. 3 [Concomitant]
  8. CALCIUM [Concomitant]
  9. FUROSEMIDE [Concomitant]
  10. LETAIRIS [Suspect]
     Indication: PULMONARY ARTERIAL HYPERTENSION
     Route: 048
     Dates: start: 20081201, end: 20090101
  11. LETAIRIS [Suspect]
     Route: 048
     Dates: start: 20070801, end: 20080401
  12. REVATIO [Concomitant]
  13. FOSAMAX PLUS D [Concomitant]
  14. OMEPRAZOLE [Concomitant]
  15. M.V.I. [Concomitant]
  16. LETAIRIS [Suspect]
     Route: 048
     Dates: start: 20080401, end: 20081201

REACTIONS (5)
  - DEATH [None]
  - DYSPNOEA [None]
  - COUGH [None]
  - PRURITUS [None]
  - RASH [None]
